FAERS Safety Report 10781540 (Version 3)
Quarter: 2015Q3

REPORT INFORMATION
  Report Type: Spontaneous
  Country: FR (occurrence: FR)
  Receive Date: 20150210
  Receipt Date: 20150810
  Transmission Date: 20151125
  Serious: Yes (Other)
  Sender: FDA-Public Use
  Company Number: FR-IPSEN BIOPHARMACEUTICALS, INC.-2015-2186

PATIENT
  Age: 18 Year
  Sex: Female
  Weight: 42 kg

DRUGS (3)
  1. DYSPORT [Suspect]
     Active Substance: ABOBOTULINUMTOXINA
     Indication: DIPLEGIA
     Dosage: 950 UNITS
     Route: 030
     Dates: start: 20141208, end: 20141208
  2. ATARAX [Concomitant]
     Active Substance: HYDROXYZINE\HYDROXYZINE HYDROCHLORIDE
     Indication: PRODUCT USED FOR UNKNOWN INDICATION
     Dosage: NOT REPORTED
     Route: 065
     Dates: start: 20141218, end: 20141218
  3. MEOPA [Concomitant]
     Indication: PRODUCT USED FOR UNKNOWN INDICATION
     Dosage: NOT REPORTED
     Route: 065
     Dates: start: 20141218, end: 20141218

REACTIONS (7)
  - Enuresis [Recovered/Resolved]
  - Faecaloma [Recovered/Resolved]
  - Influenza like illness [Recovered/Resolved]
  - Eyelid ptosis [Recovered/Resolved]
  - Drug effect decreased [Unknown]
  - Product preparation error [Unknown]
  - Condition aggravated [Recovered/Resolved]

NARRATIVE: CASE EVENT DATE: 20141223
